FAERS Safety Report 12540551 (Version 4)
Quarter: 2016Q4

REPORT INFORMATION
  Report Type: Spontaneous
  Country: US (occurrence: US)
  Receive Date: 20160708
  Receipt Date: 20161012
  Transmission Date: 20170207
  Serious: No
  Sender: FDA-Public Use
  Company Number: US-TEVA-650264USA

PATIENT
  Age: 44 Year
  Sex: Female

DRUGS (2)
  1. ZECUITY [Suspect]
     Active Substance: SUMATRIPTAN SUCCINATE
     Indication: HEADACHE
     Route: 062
     Dates: start: 20160323
  2. ZECUITY [Suspect]
     Active Substance: SUMATRIPTAN SUCCINATE
     Route: 062
     Dates: start: 201605

REACTIONS (6)
  - Paraesthesia [Recovered/Resolved]
  - Application site pruritus [Recovered/Resolved]
  - Application site exfoliation [Recovered/Resolved]
  - Application site erythema [Recovered/Resolved]
  - Product adhesion issue [Recovered/Resolved]
  - Product leakage [Recovered/Resolved]

NARRATIVE: CASE EVENT DATE: 20160325
